FAERS Safety Report 23627958 (Version 2)
Quarter: 2024Q1

REPORT INFORMATION
  Report Type: Spontaneous
  Country: EE (occurrence: EE)
  Receive Date: 20240313
  Receipt Date: 20240320
  Transmission Date: 20240409
  Serious: Yes (Hospitalization)
  Sender: FDA-Public Use
  Company Number: EE-MYLANLABS-2024M1022446

PATIENT
  Age: 13 Year
  Sex: Female
  Weight: 80 kg

DRUGS (1)
  1. SERTRALINE [Suspect]
     Active Substance: SERTRALINE HYDROCHLORIDE
     Indication: Product used for unknown indication
     Dosage: 2.8 GRAM
     Route: 048

REACTIONS (2)
  - Oxygen saturation decreased [Unknown]
  - Overdose [Unknown]
